FAERS Safety Report 25348513 (Version 1)
Quarter: 2025Q2

REPORT INFORMATION
  Report Type: Spontaneous
  Country: ES (occurrence: ES)
  Receive Date: 20250522
  Receipt Date: 20250522
  Transmission Date: 20250717
  Serious: Yes (Hospitalization)
  Sender: JUBILANT
  Company Number: ES-JUBILANT CADISTA PHARMACEUTICALS-2025JUB00068

PATIENT
  Age: 21 Year
  Sex: Male

DRUGS (2)
  1. LAMOTRIGINE [Suspect]
     Active Substance: LAMOTRIGINE
     Indication: Bipolar disorder
  2. PROPRANOLOL [Concomitant]
     Active Substance: PROPRANOLOL HYDROCHLORIDE

REACTIONS (4)
  - Ventricular tachycardia [Unknown]
  - Electrocardiogram QRS complex prolonged [Unknown]
  - Coma [Unknown]
  - Overdose [Unknown]
